FAERS Safety Report 18548837 (Version 1)
Quarter: 2020Q4

REPORT INFORMATION
  Report Type: Report from Study
  Country: US (occurrence: US)
  Receive Date: 20201125
  Receipt Date: 20201125
  Transmission Date: 20210114
  Serious: Yes (Other)
  Sender: FDA-Public Use
  Company Number: US-ACCORD-208435

PATIENT
  Age: 70 Year
  Sex: Male

DRUGS (3)
  1. PACLITAXEL/PACLITAXEL LIPOSOME [Suspect]
     Active Substance: PACLITAXEL
     Indication: ADENOCARCINOMA PANCREAS
     Dosage: ON DAY 1, 8, 15 OF 28-DAY CYCLE
  2. NAPABUCASIN [Suspect]
     Active Substance: NAPABUCASIN
     Indication: ADENOCARCINOMA PANCREAS
  3. GEMCITABINE/GEMCITABINE HYDROCHLORIDE [Suspect]
     Active Substance: GEMCITABINE\GEMCITABINE HYDROCHLORIDE
     Indication: ADENOCARCINOMA PANCREAS
     Dosage: ON DAYS 1, 8, 15 OF 28-DAY CYCLE

REACTIONS (3)
  - Cystoid macular oedema [Recovered/Resolved]
  - Neutropenia [Unknown]
  - Neuropathy peripheral [Unknown]
